FAERS Safety Report 8446473-9 (Version None)
Quarter: 2012Q2

REPORT INFORMATION
  Report Type: 
  Country: None (occurrence: None)
  Receive Date: 20120618
  Receipt Date: 20120405
  Transmission Date: 20120825
  Serious: Yes (Other)
  Sender: FDA-Public Use
  Company Number: US-TEVA-332057USA

PATIENT
  Sex: Female

DRUGS (3)
  1. OXYCODONE HCL [Concomitant]
     Indication: PAIN
     Dosage: 180 MILLIGRAM;
     Route: 048
  2. OXYMORPHONE [Concomitant]
     Indication: PAIN
     Dosage: 80 MILLIGRAM;
     Route: 048
  3. ACTIQ [Suspect]
     Route: 002
     Dates: end: 20120402

REACTIONS (3)
  - NAUSEA [None]
  - WITHDRAWAL SYNDROME [None]
  - INFLUENZA LIKE ILLNESS [None]
